FAERS Safety Report 7910460-7 (Version None)
Quarter: 2011Q4

REPORT INFORMATION
  Report Type: 
  Country: None (occurrence: None)
  Receive Date: 20111111
  Receipt Date: 20111101
  Transmission Date: 20120403
  Serious: Yes (Other)
  Sender: FDA-Public Use
  Company Number: PHFR2011IE06264

PATIENT
  Sex: Male

DRUGS (3)
  1. CLOZARIL [Suspect]
     Dosage: 400 MG, UNK
     Route: 048
  2. CLOZARIL [Suspect]
     Indication: SCHIZOPHRENIA
     Route: 048
     Dates: start: 20060110
  3. CLOZARIL [Suspect]
     Dosage: 800 MG, UNK
     Route: 048

REACTIONS (5)
  - OBSESSIVE-COMPULSIVE DISORDER [None]
  - NEUTROPENIA [None]
  - INCORRECT DOSE ADMINISTERED [None]
  - COELIAC DISEASE [None]
  - TOURETTE'S DISORDER [None]
